FAERS Safety Report 5134382-2 (Version None)
Quarter: 2006Q4

REPORT INFORMATION
  Report Type: 
  Country: None (occurrence: None)
  Receive Date: 20061025
  Receipt Date: 20060929
  Transmission Date: 20070319
  Serious: Yes (Hospitalization)
  Sender: FDA-Public Use
  Company Number: FR-BRISTOL-MYERS SQUIBB COMPANY-13529193

PATIENT
  Age: 70 Year
  Sex: Female

DRUGS (9)
  1. GLUCOPHAGE [Suspect]
     Route: 048
  2. ASPIRIN [Suspect]
     Route: 048
     Dates: start: 20060821, end: 20060821
  3. ATHYMIL [Suspect]
  4. PERINDOPRIL ERBUMINE [Concomitant]
  5. BIPRETERAX [Concomitant]
  6. NEBILOX [Concomitant]
  7. TRANXENE [Suspect]
     Route: 048
  8. DAONIL [Suspect]
     Route: 048
  9. LIPANOR [Suspect]
     Route: 048

REACTIONS (3)
  - ANAEMIA [None]
  - GASTRIC ULCER [None]
  - MELAENA [None]
